FAERS Safety Report 24630250 (Version 1)
Quarter: 2024Q4

REPORT INFORMATION
  Report Type: Report from Study
  Country: MX (occurrence: MX)
  Receive Date: 20241118
  Receipt Date: 20241118
  Transmission Date: 20250115
  Serious: Yes (Hospitalization)
  Sender: ROCHE
  Company Number: MX-ROCHE-10000131648

PATIENT
  Age: 25 Year
  Sex: Female
  Weight: 63 kg

DRUGS (6)
  1. RITUXIMAB [Suspect]
     Active Substance: RITUXIMAB
     Indication: Multiple sclerosis
     Dosage: TWO AMPOULES IN TWO SESSIONS, FREQUENCY WAS NOT REPORTED
     Route: 042
     Dates: start: 2018, end: 202002
  2. RITUXIMAB [Suspect]
     Active Substance: RITUXIMAB
     Indication: Systemic lupus erythematosus
  3. GABAPENTIN [Concomitant]
     Active Substance: GABAPENTIN
     Dosage: DOSE AND FREQUENCY WERE NOT REPORTED
  4. LEVETIRACETAM [Concomitant]
     Active Substance: LEVETIRACETAM
     Dosage: DOSE AND FREQUENCY WERE NOT REPORTED
  5. HYDROXYCHLOROQUINE [Concomitant]
     Active Substance: HYDROXYCHLOROQUINE
     Dosage: DOSE AND FREQUENCY WERE NOT REPORTED
  6. LACOSAMIDE [Concomitant]
     Active Substance: LACOSAMIDE
     Dosage: DOSE AND FREQUENCY WERE NOT REPORTED

REACTIONS (5)
  - Off label use [Unknown]
  - Neutropenia [Recovered/Resolved]
  - Pyrexia [Recovered/Resolved]
  - Infection [Recovered/Resolved]
  - Immunodeficiency [Recovered/Resolved]

NARRATIVE: CASE EVENT DATE: 20180101
